FAERS Safety Report 5370008-0 (Version None)
Quarter: 2007Q2

REPORT INFORMATION
  Report Type: 
  Country: None (occurrence: None)
  Receive Date: 20070626
  Receipt Date: 20070619
  Transmission Date: 20071010
  Serious: Yes (Other)
  Sender: FDA-Public Use
  Company Number: US-ASTRAZENECA-2007UW14713

PATIENT
  Age: 39 Year
  Sex: Female

DRUGS (8)
  1. SEROQUEL [Suspect]
     Route: 048
  2. SEROQUEL [Suspect]
     Route: 048
  3. SEROQUEL [Suspect]
     Route: 048
  4. SEROQUEL [Suspect]
     Route: 048
  5. BENZODIAZEPINE [Concomitant]
  6. ATIVAN [Concomitant]
  7. AMBIEN [Concomitant]
  8. EFFEXOR [Concomitant]

REACTIONS (3)
  - AKATHISIA [None]
  - LOSS OF CONSCIOUSNESS [None]
  - RESTLESSNESS [None]
